FAERS Safety Report 9916247 (Version 1)
Quarter: 2014Q1

REPORT INFORMATION
  Report Type: Spontaneous
  Country: US (occurrence: None)
  Receive Date: 20140220
  Receipt Date: 20140220
  Transmission Date: 20141002
  Serious: No
  Sender: FDA-Public Use
  Company Number: None

PATIENT
  Age: 80 Year
  Sex: Female

DRUGS (13)
  1. INLYTA [Suspect]
     Route: 048
     Dates: start: 201204
  2. GABAPENTIN [Concomitant]
     Route: 048
  3. LEVOTHYROXINE [Concomitant]
  4. FUROSEMIDE [Concomitant]
  5. BYSTOLIC [Concomitant]
  6. OMEPRAZOLE [Concomitant]
  7. METFORMIN [Concomitant]
  8. LISINOPRIL [Concomitant]
  9. ASA [Concomitant]
  10. TYLENOL 8 HR [Concomitant]
  11. VALPROICACID [Concomitant]
  12. LANTUS [Concomitant]
  13. NOVOLOG [Concomitant]

REACTIONS (1)
  - Headache [None]
